FAERS Safety Report 22359891 (Version 1)
Quarter: 2023Q2

REPORT INFORMATION
  Report Type: Spontaneous
  Country: US (occurrence: US)
  Receive Date: 20230524
  Receipt Date: 20230524
  Transmission Date: 20230721
  Serious: No
  Sender: FDA-Public Use
  Company Number: US-BRISTOL-MYERS SQUIBB COMPANY-2023-072911

PATIENT
  Sex: Female

DRUGS (2)
  1. SOTYKTU [Suspect]
     Active Substance: DEUCRAVACITINIB
     Indication: Psoriasis
  2. MOUNJARO [Concomitant]
     Active Substance: TIRZEPATIDE
     Indication: Glucose tolerance impaired

REACTIONS (1)
  - Liver function test increased [Recovered/Resolved]
